FAERS Safety Report 13185167 (Version 3)
Quarter: 2017Q1

REPORT INFORMATION
  Report Type: Spontaneous
  Country: FI (occurrence: FI)
  Receive Date: 20170203
  Receipt Date: 20170216
  Transmission Date: 20170428
  Serious: Yes (Hospitalization)
  Sender: FDA-Public Use
  Company Number: FI-SA-2017SA016312

PATIENT
  Age: 69 Year
  Sex: Male

DRUGS (6)
  1. INSULIN [Concomitant]
     Active Substance: INSULIN NOS
     Indication: DIABETES MELLITUS
  2. INSULIN [Concomitant]
     Active Substance: INSULIN NOS
     Indication: BLOOD GLUCOSE INCREASED
     Dosage: SHORT ACTING INSULIN DOSE:10 UNIT(S)
  3. LABETALOL [Concomitant]
     Active Substance: LABETALOL\LABETALOL HYDROCHLORIDE
     Indication: BLOOD PRESSURE MEASUREMENT
  4. INSULIN [Concomitant]
     Active Substance: INSULIN NOS
     Indication: BLOOD GLUCOSE INCREASED
  5. CLOPIDOGREL BISULFATE. [Suspect]
     Active Substance: CLOPIDOGREL BISULFATE
     Indication: CEREBRAL INFARCTION
     Route: 065
  6. INSULIN [Concomitant]
     Active Substance: INSULIN NOS
     Indication: DIABETES MELLITUS
     Dosage: SHORT ACTING INSULIN DOSE:10 UNIT(S)

REACTIONS (13)
  - Gaze palsy [Recovering/Resolving]
  - Disorientation [Recovering/Resolving]
  - Cerebral infarction [Recovering/Resolving]
  - Incoherent [Recovering/Resolving]
  - Drug ineffective [Recovering/Resolving]
  - Blindness cortical [Recovering/Resolving]
  - Cerebral artery thrombosis [Recovering/Resolving]
  - Fumbling [Recovering/Resolving]
  - Gait disturbance [Recovering/Resolving]
  - Confusional state [Recovering/Resolving]
  - International normalised ratio decreased [Recovering/Resolving]
  - Malaise [Recovering/Resolving]
  - Thrombotic stroke [Recovering/Resolving]
